FAERS Safety Report 8823364 (Version 1)
Quarter: 2012Q4

REPORT INFORMATION
  Report Type: 
  Country: US (occurrence: US)
  Receive Date: 20121003
  Receipt Date: 20121003
  Transmission Date: 20130627
  Serious: No
  Sender: FDA-Public Use
  Company Number: US-009507513-1210USA001411

PATIENT
  Sex: Male

DRUGS (3)
  1. MIRALAX [Suspect]
     Indication: PRODUCT USED FOR UNKNOWN INDICATION
     Dosage: 17 g, Unknown
     Route: 048
     Dates: start: 2012
  2. MIRALAX [Suspect]
     Dosage: 8 g, Unknown
     Route: 048
     Dates: start: 2012
  3. MIRALAX [Suspect]
     Dosage: 17 g, Unknown
     Route: 048
     Dates: start: 201209

REACTIONS (2)
  - Drug ineffective [Unknown]
  - Underdose [Unknown]
